FAERS Safety Report 6361153-1 (Version None)
Quarter: 2009Q3

REPORT INFORMATION
  Report Type: 
  Country: None (occurrence: None)
  Receive Date: 20090918
  Receipt Date: 20090909
  Transmission Date: 20100115
  Serious: Yes (Hospitalization, Other)
  Sender: FDA-Public Use
  Company Number: US-ABBOTT-09P-163-0596211-00

PATIENT
  Sex: Female

DRUGS (2)
  1. HUMIRA [Suspect]
     Indication: CROHN'S DISEASE
     Route: 058
     Dates: start: 20060101, end: 20090601
  2. HUMIRA [Suspect]
     Route: 058
     Dates: start: 20090601

REACTIONS (10)
  - CEREBROVASCULAR ACCIDENT [None]
  - DIZZINESS [None]
  - INCREASED TENDENCY TO BRUISE [None]
  - INTESTINAL RESECTION [None]
  - PALLOR [None]
  - RECTAL HAEMORRHAGE [None]
  - RHEUMATOID ARTHRITIS [None]
  - SWELLING [None]
  - THERAPEUTIC RESPONSE DECREASED [None]
  - WEIGHT INCREASED [None]
